FAERS Safety Report 17715674 (Version 5)
Quarter: 2025Q3

REPORT INFORMATION
  Report Type: Spontaneous
  Country: EU (occurrence: EU)
  Receive Date: 20200427
  Receipt Date: 20250826
  Transmission Date: 20251020
  Serious: Yes (Hospitalization, Other)
  Sender: AUROBINDO
  Company Number: EU-MERCK HEALTHCARE KGAA-9156838

PATIENT
  Sex: Female

DRUGS (4)
  1. DIAZEPAM [Interacting]
     Active Substance: DIAZEPAM
     Indication: Depression
     Route: 064
  2. FLUOXETINE [Suspect]
     Active Substance: FLUOXETINE HYDROCHLORIDE
     Indication: Depression
     Route: 064
  3. PHENOBARBITAL [Suspect]
     Active Substance: PHENOBARBITAL
     Indication: Product used for unknown indication
     Route: 040
  4. ACYCLOVIR [Concomitant]
     Active Substance: ACYCLOVIR
     Indication: Product used for unknown indication
     Route: 065

REACTIONS (19)
  - Floppy infant [Unknown]
  - Bradypnoea [Recovered/Resolved]
  - Neonatal hypoxia [Recovered/Resolved]
  - Labelled drug-drug interaction medication error [Unknown]
  - Primitive reflex test positive [Recovered/Resolved]
  - Drug withdrawal syndrome neonatal [Unknown]
  - Myoclonus [Recovered/Resolved]
  - Hypotonia neonatal [Recovered/Resolved]
  - Poor sucking reflex [Recovered/Resolved]
  - Tremor neonatal [Recovered/Resolved]
  - Irregular breathing [Recovered/Resolved]
  - Poor feeding infant [Recovered/Resolved]
  - Neurological examination abnormal [Recovered/Resolved]
  - Hyporesponsive to stimuli [Recovered/Resolved]
  - Foetal exposure during pregnancy [Recovered/Resolved]
  - Oxygen saturation decreased [Recovered/Resolved]
  - Tremor [Recovered/Resolved]
  - Hypotonia [Recovered/Resolved]
  - Clonus [Recovered/Resolved]
